FAERS Safety Report 16806749 (Version 1)
Quarter: 2019Q3

REPORT INFORMATION
  Report Type: Spontaneous
  Country: US (occurrence: US)
  Receive Date: 20190913
  Receipt Date: 20190913
  Transmission Date: 20191005
  Serious: Yes (Other)
  Sender: FDA-Public Use
  Company Number: US-RIGEL PHARMACEUTICALS, INC.-2019FOS000438

PATIENT
  Sex: Female

DRUGS (3)
  1. TAVALISSE [Suspect]
     Active Substance: FOSTAMATINIB
     Dosage: 150 MG, BID
     Route: 048
  2. DANAZOL. [Suspect]
     Active Substance: DANAZOL
     Indication: PRODUCT USED FOR UNKNOWN INDICATION
     Dosage: UNK
  3. TAVALISSE [Suspect]
     Active Substance: FOSTAMATINIB
     Dosage: 150 MG, QD
     Route: 048
     Dates: start: 201809

REACTIONS (6)
  - Internal haemorrhage [Unknown]
  - Drug interaction [None]
  - Platelet count decreased [Unknown]
  - Haemoglobin decreased [Unknown]
  - Malaise [Unknown]
  - Hepatic enzyme increased [Unknown]
